FAERS Safety Report 9322865 (Version 1)
Quarter: 2013Q2

REPORT INFORMATION
  Report Type: Spontaneous
  Country: JP (occurrence: JP)
  Receive Date: 20130602
  Receipt Date: 20130602
  Transmission Date: 20140414
  Serious: Yes (Other)
  Sender: FDA-Public Use
  Company Number: JP-MYLANLABS-2013S1011433

PATIENT
  Age: 37 Year
  Sex: Male

DRUGS (1)
  1. PREDNISOLONE [Suspect]
     Indication: ORGANISING PNEUMONIA
     Dosage: 1 MG/KG/DAY, TOTAL 55 MG/DAY
     Route: 065

REACTIONS (2)
  - Pneumothorax [Recovering/Resolving]
  - Lung cyst [Recovering/Resolving]
